FAERS Safety Report 21549160 (Version 2)
Quarter: 2022Q4

REPORT INFORMATION
  Report Type: Spontaneous
  Country: CA (occurrence: CA)
  Receive Date: 20221103
  Receipt Date: 20221115
  Transmission Date: 20230113
  Serious: Yes (Hospitalization, Other)
  Sender: FDA-Public Use
  Company Number: CA-INCYTE CORPORATION-2022IN009892

PATIENT

DRUGS (1)
  1. PEMAZYRE [Suspect]
     Active Substance: PEMIGATINIB
     Indication: Nasal sinus cancer
     Dosage: 13.5 MILLIGRAM, 14 DAYS ON AND 7 DAYS OFF
     Route: 048
     Dates: start: 20220924, end: 20221027

REACTIONS (13)
  - Pyrexia [Unknown]
  - Nasal sinus cancer [Unknown]
  - Mouth ulceration [Unknown]
  - Decreased appetite [Unknown]
  - Wound [Unknown]
  - Feeding disorder [Unknown]
  - Drug intolerance [Unknown]
  - General physical health deterioration [Unknown]
  - Disease progression [Unknown]
  - Off label use [Unknown]
  - Fatigue [Unknown]
  - Asthenia [Unknown]
  - Stomatitis [Unknown]

NARRATIVE: CASE EVENT DATE: 20220924
